FAERS Safety Report 10727435 (Version 2)
Quarter: 2018Q1

REPORT INFORMATION
  Report Type: Report from Study
  Country: None (occurrence: CA)
  Receive Date: 20150121
  Receipt Date: 20180222
  Transmission Date: 20180508
  Serious: Yes (Hospitalization)
  Sender: FDA-Public Use
  Company Number: CA-ABBVIE-15K-028-1334734-00

PATIENT
  Sex: Male

DRUGS (2)
  1. HUMIRA [Suspect]
     Active Substance: ADALIMUMAB
     Route: 058
     Dates: start: 20150115
  2. HUMIRA [Suspect]
     Active Substance: ADALIMUMAB
     Indication: RHEUMATOID ARTHRITIS
     Route: 058
     Dates: start: 20050630, end: 201412

REACTIONS (8)
  - Memory impairment [Unknown]
  - Arthralgia [Recovered/Resolved]
  - Chest pain [Recovered/Resolved]
  - Arthralgia [Unknown]
  - Pulmonary oedema [Recovered/Resolved]
  - Back pain [Unknown]
  - Pain in extremity [Unknown]
  - Inappropriate schedule of drug administration [Not Recovered/Not Resolved]

NARRATIVE: CASE EVENT DATE: 2005
